FAERS Safety Report 4818997-4 (Version None)
Quarter: 2005Q4

REPORT INFORMATION
  Report Type: 
  Country: None (occurrence: None)
  Receive Date: 20051101
  Receipt Date: 20051101
  Transmission Date: 20060501
  Serious: Yes (Disabling)
  Sender: FDA-Public Use
  Company Number: None

PATIENT
  Age: 25 Year
  Sex: Female
  Weight: 56.6996 kg

DRUGS (1)
  1. SEPTOCAINE [Suspect]
     Indication: TOOTH REPAIR
     Dosage: 4%
     Dates: start: 20051026, end: 20051026

REACTIONS (2)
  - AGEUSIA [None]
  - HYPOAESTHESIA ORAL [None]
